FAERS Safety Report 25606925 (Version 1)
Quarter: 2025Q3

REPORT INFORMATION
  Report Type: Spontaneous
  Country: US (occurrence: None)
  Receive Date: 20250725
  Receipt Date: 20250725
  Transmission Date: 20251021
  Serious: Yes (Hospitalization)
  Sender: FDA-CTU
  Company Number: None

PATIENT
  Sex: Female

DRUGS (1)
  1. FORTEO [Suspect]
     Active Substance: TERIPARATIDE
     Indication: Senile osteoporosis
     Dosage: FREQUENCY : DAILY;?STRENGTH: 560 MCG/2.24ML
     Route: 058
     Dates: start: 20250617

REACTIONS (4)
  - Nonspecific reaction [None]
  - Therapy interrupted [None]
  - Loss of personal independence in daily activities [None]
  - Hypophagia [None]
